FAERS Safety Report 10750195 (Version 2)
Quarter: 2015Q1

REPORT INFORMATION
  Report Type: Report from Study
  Country: AU (occurrence: AU)
  Receive Date: 20150129
  Receipt Date: 20150210
  Transmission Date: 20150721
  Serious: Yes (Death, Other)
  Sender: FDA-Public Use
  Company Number: PHHY2015AU010035

PATIENT
  Sex: Male

DRUGS (5)
  1. CARDENE [Concomitant]
     Active Substance: NICARDIPINE HYDROCHLORIDE
     Indication: PRODUCT USED FOR UNKNOWN INDICATION
     Route: 065
  2. MMF [Concomitant]
     Active Substance: MYCOPHENOLATE MOFETIL
     Indication: PRODUCT USED FOR UNKNOWN INDICATION
     Route: 065
  3. PPI//OMEPRAZOLE [Concomitant]
     Indication: PRODUCT USED FOR UNKNOWN INDICATION
     Route: 065
  4. ACLASTA [Suspect]
     Active Substance: ZOLEDRONIC ACID
     Indication: PRODUCT USED FOR UNKNOWN INDICATION
     Dosage: 5 MG, 12 MONTHS AGO (ANNUALLY)
     Route: 042
  5. PREDNISOLON [Concomitant]
     Active Substance: PREDNISOLONE
     Indication: PRODUCT USED FOR UNKNOWN INDICATION
     Route: 065

REACTIONS (9)
  - Ischaemia [Unknown]
  - Sepsis [Fatal]
  - Respiratory failure [Fatal]
  - Hypercapnia [Fatal]
  - Osteomyelitis [Unknown]
  - Depressed level of consciousness [Fatal]
  - Interstitial lung disease [Unknown]
  - Scleroderma [Fatal]
  - Systemic sclerosis [Fatal]
